FAERS Safety Report 8075780-7 (Version None)
Quarter: 2012Q1

REPORT INFORMATION
  Report Type: 
  Country: None (occurrence: None)
  Receive Date: 20120127
  Receipt Date: 20120125
  Transmission Date: 20120608
  Serious: Yes (Death)
  Sender: FDA-Public Use
  Company Number: DE-SHIRE-CQT2-2008-00042

PATIENT
  Sex: Male

DRUGS (7)
  1. HYDROXYUREA [Suspect]
     Indication: ESSENTIAL THROMBOCYTHAEMIA
     Dosage: 1500 MG DAILY, AS REQ'D DAILY
     Route: 048
     Dates: start: 19960501, end: 19971110
  2. ANAGRELIDE HCL [Suspect]
     Indication: ESSENTIAL THROMBOCYTHAEMIA
     Dosage: 1 MG, AS REQ'D DAILY
     Route: 048
     Dates: start: 20050527, end: 20061121
  3. NOVODIGAL                          /00017701/ [Concomitant]
     Indication: TACHYARRHYTHMIA
     Dosage: .2 MG, 1X/DAY:QD
     Route: 048
     Dates: start: 20050101
  4. HYDROXYUREA [Suspect]
     Dosage: 1000 MG DAILY, AS REQ'D DAILY
     Route: 048
     Dates: start: 20020220, end: 20040518
  5. RISPERDAL [Concomitant]
     Indication: PSYCHOTIC DISORDER
     Dosage: 100 MG, 1X/DAY:QD
     Route: 048
     Dates: start: 20080101
  6. ANAGRELIDE HCL [Suspect]
     Dosage: 1 MG DAILY FOR TWO DAYS, THEN 1.5 MG FOR ONE DAY, REPEATING
     Route: 048
     Dates: start: 20061122
  7. INTERFERON [Suspect]
     Indication: ESSENTIAL THROMBOCYTHAEMIA
     Dosage: 3 MIU, 1X/WEEK
     Route: 058
     Dates: start: 19980116, end: 20040510

REACTIONS (1)
  - CARDIAC FAILURE [None]
